FAERS Safety Report 8338932-4 (Version None)
Quarter: 2012Q2

REPORT INFORMATION
  Report Type: 
  Country: None (occurrence: None)
  Receive Date: 20120506
  Receipt Date: 20120423
  Transmission Date: 20120825
  Serious: Yes (Other)
  Sender: FDA-Public Use
  Company Number: SK-MYLANLABS-2012S1008586

PATIENT
  Age: 55 Year
  Sex: Female

DRUGS (2)
  1. CITALOPRAM HYDROBROMIDE [Suspect]
     Indication: MENTAL DISORDER
     Route: 065
  2. XANAX [Concomitant]
     Indication: MENTAL DISORDER
     Route: 065

REACTIONS (4)
  - FATIGUE [None]
  - CYSTOID MACULAR OEDEMA [None]
  - PARAESTHESIA ORAL [None]
  - OEDEMA PERIPHERAL [None]
